FAERS Safety Report 16939981 (Version 5)
Quarter: 2020Q1

REPORT INFORMATION
  Report Type: Report from Study
  Country: BR (occurrence: BR)
  Receive Date: 20191021
  Receipt Date: 20200330
  Transmission Date: 20200409
  Serious: Yes (Hospitalization, Other)
  Sender: FDA-Public Use
  Company Number: NVSC2019BR010563

PATIENT
  Age: 29 Year
  Sex: Male
  Weight: 85 kg

DRUGS (5)
  1. REBIF [Suspect]
     Active Substance: INTERFERON BETA-1A
     Indication: MULTIPLE SCLEROSIS
     Dosage: 01 DF, THREE TIMES A WEEK
     Route: 058
     Dates: start: 201809, end: 201905
  2. BACLOFEN. [Concomitant]
     Active Substance: BACLOFEN
     Indication: PRODUCT USED FOR UNKNOWN INDICATION
     Route: 065
  3. GILENYA [Suspect]
     Active Substance: FINGOLIMOD HYDROCHLORIDE
     Dosage: UNK, QD
     Route: 048
     Dates: start: 201905
  4. GILENYA [Suspect]
     Active Substance: FINGOLIMOD HYDROCHLORIDE
     Dosage: UNK, QOD
     Route: 048
     Dates: start: 201911
  5. GILENYA [Suspect]
     Active Substance: FINGOLIMOD HYDROCHLORIDE
     Indication: MULTIPLE SCLEROSIS
     Dosage: UNK
     Route: 048
     Dates: start: 201903

REACTIONS (12)
  - Spinal osteoarthritis [Recovered/Resolved]
  - Mental impairment [Unknown]
  - Multiple sclerosis relapse [Not Recovered/Not Resolved]
  - Chest pain [Recovered/Resolved]
  - Multiple sclerosis relapse [Recovered/Resolved]
  - Local reaction [Unknown]
  - Hypoaesthesia [Recovered/Resolved]
  - Drug ineffective [Unknown]
  - Malaise [Unknown]
  - Spinal pain [Recovered/Resolved]
  - Central nervous system lesion [Not Recovered/Not Resolved]
  - Myelitis [Recovered/Resolved]

NARRATIVE: CASE EVENT DATE: 201904
